FAERS Safety Report 8884391 (Version 1)
Quarter: 2012Q4

REPORT INFORMATION
  Report Type: 
  Country: US (occurrence: US)
  Receive Date: 20121102
  Receipt Date: 20121102
  Transmission Date: 20130627
  Serious: No
  Sender: FDA-Public Use
  Company Number: US-ASTRAZENECA-2012SE22957

PATIENT
  Age: 65 Year
  Sex: Female

DRUGS (3)
  1. CRESTOR [Suspect]
     Indication: BLOOD CHOLESTEROL ABNORMAL
     Route: 048
  2. DUTOPROL [Suspect]
     Indication: HYPERTENSION
     Route: 048
  3. DUTOPROL [Suspect]
     Indication: HYPERTENSION
     Dosage: HALF TABLET OF 25 MG OF DUTOPROL
     Route: 065

REACTIONS (6)
  - Feeling abnormal [Unknown]
  - Dizziness [Unknown]
  - Dizziness [Unknown]
  - Headache [Unknown]
  - Drug prescribing error [Unknown]
  - Intentional drug misuse [Unknown]
